FAERS Safety Report 13379250 (Version 1)
Quarter: 2017Q1

REPORT INFORMATION
  Report Type: Spontaneous
  Country: US (occurrence: US)
  Receive Date: 20170328
  Receipt Date: 20170328
  Transmission Date: 20170429
  Serious: Yes (Other)
  Sender: FDA-Public Use
  Company Number: US-SA-2017SA048300

PATIENT
  Age: 79 Year
  Sex: Female

DRUGS (15)
  1. ALOE VERA [Concomitant]
     Active Substance: ALOE VERA LEAF
  2. DOCUSATE [Concomitant]
     Active Substance: DOCUSATE
  3. LIDOCAINE. [Concomitant]
     Active Substance: LIDOCAINE
  4. ZOLOFT [Concomitant]
     Active Substance: SERTRALINE HYDROCHLORIDE
  5. COPAXONE [Concomitant]
     Active Substance: GLATIRAMER ACETATE
  6. CITRACAL + D [Concomitant]
     Active Substance: CALCIUM CITRATE\VITAMIN D
  7. FIBER [Concomitant]
     Active Substance: PSYLLIUM HUSK
  8. ZYRTEC [Concomitant]
     Active Substance: CETIRIZINE HYDROCHLORIDE
  9. ATORVASTATIN [Concomitant]
     Active Substance: ATORVASTATIN
  10. CALCITONIN [Concomitant]
     Active Substance: CALCITONIN
  11. GLUCOSAMINE [Concomitant]
     Active Substance: GLUCOSAMINE
  12. BIOTIN [Concomitant]
     Active Substance: BIOTIN
  13. FUROSEMIDE. [Concomitant]
     Active Substance: FUROSEMIDE
  14. AUBAGIO [Suspect]
     Active Substance: TERIFLUNOMIDE
     Indication: MULTIPLE SCLEROSIS
     Route: 048
     Dates: start: 20161021, end: 20170224
  15. CHONDROITIN [Concomitant]
     Active Substance: CHONDROITIN

REACTIONS (2)
  - Atrial fibrillation [Not Recovered/Not Resolved]
  - Hypertension [Not Recovered/Not Resolved]

NARRATIVE: CASE EVENT DATE: 20170224
